FAERS Safety Report 16034962 (Version 1)
Quarter: 2019Q1

REPORT INFORMATION
  Report Type: Spontaneous
  Country: US (occurrence: US)
  Receive Date: 20190305
  Receipt Date: 20190305
  Transmission Date: 20190418
  Serious: Yes (Other)
  Sender: FDA-Public Use
  Company Number: US-TEVA-2019-US-1018566

PATIENT
  Age: 15 Year
  Sex: Female

DRUGS (2)
  1. IRINOTECAN [Suspect]
     Active Substance: IRINOTECAN
     Indication: EWING^S SARCOMA METASTATIC
     Dosage: 55 MBQ DAILY; DATE OF LAST DOSE:04-DEC-2017(DAY 6 COURSE 2)
  2. TEMOZOLOMIDE. [Suspect]
     Active Substance: TEMOZOLOMIDE
     Indication: EWING^S SARCOMA
     Dosage: 20 MILLIGRAM DAILY; DATE OF LAST DOSE:04-DEC-2017(DAY 6 COURSE 2)
     Dates: end: 201706

REACTIONS (2)
  - Neutropenia [Unknown]
  - Thrombocytopenia [Unknown]
